FAERS Safety Report 10474105 (Version 1)
Quarter: 2014Q3

REPORT INFORMATION
  Report Type: Spontaneous
  Country: US (occurrence: US)
  Receive Date: 20140924
  Receipt Date: 20140924
  Transmission Date: 20150326
  Serious: No
  Sender: FDA-Public Use
  Company Number: US-ASTRAZENECA-2013SE86334

PATIENT
  Age: 50 Year
  Sex: Female
  Weight: 102.1 kg

DRUGS (2)
  1. LISINOPRIL. [Suspect]
     Active Substance: LISINOPRIL
     Indication: HYPERTENSION
     Route: 048
     Dates: end: 2011
  2. LISINOPRIL. [Suspect]
     Active Substance: LISINOPRIL
     Indication: HYPERTENSION
     Dosage: GENERIC
     Route: 048
     Dates: start: 2010, end: 2011

REACTIONS (5)
  - Confusional state [Recovered/Resolved]
  - Cluster headache [Recovered/Resolved]
  - Intentional product misuse [Recovered/Resolved]
  - Malaise [Recovered/Resolved]
  - Therapeutic response changed [Recovered/Resolved]

NARRATIVE: CASE EVENT DATE: 2010
